FAERS Safety Report 10243514 (Version 3)
Quarter: 2015Q2

REPORT INFORMATION
  Report Type: Spontaneous
  Country: US (occurrence: None)
  Receive Date: 20140616
  Receipt Date: 20150506
  Transmission Date: 20150821
  Serious: Yes (Other)
  Sender: FDA-Public Use
  Company Number: ADR-2014-00909

PATIENT
  Age: 62 Year
  Sex: Female

DRUGS (5)
  1. BACLOFEN INTRATHECAL [Suspect]
     Active Substance: BACLOFEN
     Indication: PAIN
     Dosage: SEE B 5
  2. BUPIVACAINE [Suspect]
     Active Substance: BUPIVACAINE
     Dosage: BUPIVACAINE (INTRATHECAL) UNITS UNCLEAR
  3. CLONIDINE. [Suspect]
     Active Substance: CLONIDINE
     Indication: PAIN
     Dosage: SEE B 5
  4. LYRICA [Suspect]
     Active Substance: PREGABALIN
     Dosage: DOSE AND FREQUENCY UNKNOWN
  5. MORPHINE [Suspect]
     Active Substance: MORPHINE
     Dosage: UNITS UNCLEAR

REACTIONS (15)
  - Dehydration [None]
  - Delusion [None]
  - Movement disorder [None]
  - Dizziness [None]
  - Coma [None]
  - Nasal discomfort [None]
  - Rhinorrhoea [None]
  - Hypophagia [None]
  - Foaming at mouth [None]
  - Abasia [None]
  - Sneezing [None]
  - Joint swelling [None]
  - Rhinalgia [None]
  - Peripheral swelling [None]
  - Lymphoedema [None]

NARRATIVE: CASE EVENT DATE: 20131102
